FAERS Safety Report 9607726 (Version 2)
Quarter: 2013Q4

REPORT INFORMATION
  Report Type: Spontaneous
  Country: DE (occurrence: DE)
  Receive Date: 20131009
  Receipt Date: 20131112
  Transmission Date: 20140711
  Serious: Yes (Hospitalization, Disabling, Other)
  Sender: FDA-Public Use
  Company Number: DE-ASTELLAS-2013EU008574

PATIENT
  Sex: Male

DRUGS (2)
  1. XTANDI [Suspect]
     Dosage: UNK
     Route: 065
     Dates: start: 20130928, end: 20131004
  2. FENTANYL [Interacting]
     Indication: PAIN
     Dosage: UNK
     Route: 065

REACTIONS (7)
  - Drug interaction [Unknown]
  - Metastases to central nervous system [Unknown]
  - Muscular weakness [Not Recovered/Not Resolved]
  - Slow response to stimuli [Not Recovered/Not Resolved]
  - Fatigue [Not Recovered/Not Resolved]
  - Prostatic specific antigen increased [Unknown]
  - Bone pain [Unknown]
